FAERS Safety Report 8963774 (Version 4)
Quarter: 2013Q4

REPORT INFORMATION
  Report Type: Report from Study
  Country: FR (occurrence: FR)
  Receive Date: 20121214
  Receipt Date: 20131217
  Transmission Date: 20140711
  Serious: Yes (Hospitalization, Other)
  Sender: FDA-Public Use
  Company Number: FR-UCBSA-060626

PATIENT
  Age: 36 Year
  Sex: Female
  Weight: 48 kg

DRUGS (13)
  1. CIMZIA [Suspect]
     Indication: RHEUMATOID ARTHRITIS
     Dosage: 400 MG EVERY 2 WEEKS
     Route: 058
     Dates: start: 20120319, end: 20120416
  2. CIMZIA [Suspect]
     Indication: RHEUMATOID ARTHRITIS
     Route: 058
     Dates: start: 20120430, end: 20120917
  3. METHOTREXATE [Suspect]
     Indication: RHEUMATOID ARTHRITIS
     Route: 048
     Dates: start: 20120930
  4. METHOTREXATE [Suspect]
     Indication: RHEUMATOID ARTHRITIS
     Route: 048
     Dates: start: 20120617, end: 20120923
  5. METHOTREXATE [Suspect]
     Indication: RHEUMATOID ARTHRITIS
     Route: 048
     Dates: start: 201003, end: 20120610
  6. ACIDE FOLIQUE [Concomitant]
     Indication: DRUG TOXICITY PROPHYLAXIS
     Route: 048
     Dates: start: 201112
  7. NEXEN [Concomitant]
     Indication: RHEUMATOID ARTHRITIS
     Dosage: 100 MG AS NECESSARY
     Route: 048
     Dates: start: 20120904
  8. DOLIPRANE [Concomitant]
     Indication: RHEUMATOID ARTHRITIS
     Route: 048
     Dates: start: 20110606
  9. CORTANCYL [Concomitant]
     Indication: RHEUMATOID ARTHRITIS
     Dosage: UNKNOWN DOSE
     Dates: start: 20121207
  10. CORTANCYL [Concomitant]
     Indication: RHEUMATOID ARTHRITIS
     Route: 048
     Dates: start: 20121006
  11. CORTANCYL [Concomitant]
     Indication: RHEUMATOID ARTHRITIS
     Route: 048
     Dates: start: 20120926, end: 20121005
  12. CORTANCYL [Concomitant]
     Indication: RHEUMATOID ARTHRITIS
     Dosage: 15, 10 OR 5 MG
     Route: 048
     Dates: start: 20120912, end: 20120920
  13. SALAZOPYRIN [Concomitant]
     Indication: RHEUMATOID ARTHRITIS

REACTIONS (5)
  - Pulmonary tuberculosis [Recovered/Resolved]
  - Rheumatoid arthritis [Unknown]
  - Alopecia [Recovered/Resolved]
  - Pyrexia [Recovered/Resolved]
  - Drug ineffective [Recovered/Resolved]
